FAERS Safety Report 4860474-9 (Version None)
Quarter: 2005Q4

REPORT INFORMATION
  Report Type: 
  Country: None (occurrence: None)
  Receive Date: 20051219
  Receipt Date: 20051204
  Transmission Date: 20060501
  Serious: Yes (Other)
  Sender: FDA-Public Use
  Company Number: NLWYE208406DEC05

PATIENT
  Age: 9 Year
  Sex: Female

DRUGS (5)
  1. ENBREL [Suspect]
     Indication: DRUG USE FOR UNKNOWN INDICATION
     Route: 058
     Dates: start: 20051106
  2. NEORAL [Concomitant]
  3. INDOMETHACIN [Concomitant]
  4. CETIRIZINE HCL [Concomitant]
  5. PARACETAMOL [Concomitant]

REACTIONS (4)
  - CONVULSION [None]
  - DYSKINESIA [None]
  - LOSS OF CONSCIOUSNESS [None]
  - UNRESPONSIVE TO VERBAL STIMULI [None]
